FAERS Safety Report 7680506-2 (Version None)
Quarter: 2011Q3

REPORT INFORMATION
  Report Type: 
  Country: None (occurrence: None)
  Receive Date: 20110812
  Receipt Date: 20110802
  Transmission Date: 20111222
  Serious: Yes (Death, Hospitalization)
  Sender: FDA-Public Use
  Company Number: GB-BAXTER-2011BH025539

PATIENT
  Age: 57 Year
  Sex: Male

DRUGS (3)
  1. INTERFERON [Suspect]
     Indication: RELAPSING-REMITTING MULTIPLE SCLEROSIS
     Route: 065
     Dates: start: 20070709, end: 20110601
  2. FLUDARABINE PHOSPHATE [Suspect]
     Indication: DISEASE PROGRESSION
     Route: 065
     Dates: start: 20090201
  3. CYCLOPHOSPHAMIDE [Suspect]
     Indication: DISEASE PROGRESSION
     Route: 065
     Dates: start: 20090201

REACTIONS (5)
  - FUNGAL INFECTION [None]
  - LOWER RESPIRATORY TRACT INFECTION [None]
  - PNEUMONIA [None]
  - DISEASE PROGRESSION [None]
  - AUTOIMMUNE PANCYTOPENIA [None]
